FAERS Safety Report 23311891 (Version 2)
Quarter: 2024Q1

REPORT INFORMATION
  Report Type: Spontaneous
  Country: AR (occurrence: AR)
  Receive Date: 20231219
  Receipt Date: 20240131
  Transmission Date: 20240410
  Serious: Yes (Other)
  Sender: FDA-Public Use
  Company Number: AR-PFIZER INC-PV202300198977

PATIENT
  Age: 62 Year
  Sex: Male

DRUGS (2)
  1. ENBREL [Suspect]
     Active Substance: ETANERCEPT
     Indication: Rheumatoid arthritis
     Dosage: 50 MG  1 DOSE EVERY 15 DAYS
     Route: 065
     Dates: start: 20130304
  2. ENBREL [Suspect]
     Active Substance: ETANERCEPT
     Dosage: 50MG, 1 DOSE EVERY 14 DAYS
     Route: 065

REACTIONS (2)
  - Aortic disorder [Not Recovered/Not Resolved]
  - Off label use [Not Recovered/Not Resolved]

NARRATIVE: CASE EVENT DATE: 20130304
